FAERS Safety Report 9025913 (Version 1)
Quarter: 2012Q4

REPORT INFORMATION
  Report Type: Spontaneous
  Country: US (occurrence: None)
  Receive Date: 20121214
  Receipt Date: 20121214
  Transmission Date: 20130627
  Serious: Yes (Disabling)
  Sender: FDA-Public Use
  Company Number: None

PATIENT
  Sex: Female
  Weight: 77.11 kg

DRUGS (1)
  1. KETOROLEC/TORADOL [Suspect]
     Indication: PAIN
     Dates: start: 20120329, end: 20120329

REACTIONS (3)
  - Contusion [None]
  - Injection site atrophy [None]
  - Musculoskeletal pain [None]
